FAERS Safety Report 8600029-3 (Version None)
Quarter: 2012Q3

REPORT INFORMATION
  Report Type: 
  Country: None (occurrence: None)
  Receive Date: 20120816
  Receipt Date: 20120815
  Transmission Date: 20120928
  Serious: Yes (Hospitalization, Other)
  Sender: FDA-Public Use
  Company Number: CHPA2012US018154

PATIENT
  Age: 50 Year
  Sex: Female

DRUGS (4)
  1. PREVACID 24 HR [Suspect]
     Indication: GASTROOESOPHAGEAL REFLUX DISEASE
     Dosage: 15 MG, QD
     Route: 048
  2. CARAFATE [Suspect]
     Dosage: UNK, UNK
  3. PREVACID 24 HR [Suspect]
     Dosage: 30 MG, QD
     Route: 048
  4. DRUG THERAPY NOS [Suspect]
     Indication: CONJUNCTIVITIS INFECTIVE
     Route: 047

REACTIONS (15)
  - TREATMENT NONCOMPLIANCE [None]
  - ABDOMINAL PAIN UPPER [None]
  - GASTROOESOPHAGEAL REFLUX DISEASE [None]
  - INCORRECT DRUG ADMINISTRATION DURATION [None]
  - FOREIGN BODY [None]
  - EYE IRRITATION [None]
  - VOMITING [None]
  - CONJUNCTIVITIS INFECTIVE [None]
  - EYE PRURITUS [None]
  - THERAPEUTIC RESPONSE UNEXPECTED [None]
  - OVERDOSE [None]
  - GALLBLADDER DISORDER [None]
  - OFF LABEL USE [None]
  - NAUSEA [None]
  - FEELING ABNORMAL [None]
